FAERS Safety Report 9404740 (Version 1)
Quarter: 2013Q3

REPORT INFORMATION
  Report Type: Report from Study
  Country: BR (occurrence: BR)
  Receive Date: 20130717
  Receipt Date: 20130717
  Transmission Date: 20140515
  Serious: Yes (Other)
  Sender: FDA-Public Use
  Company Number: PHHY2013BR061766

PATIENT
  Sex: Male
  Weight: 120 kg

DRUGS (1)
  1. RITALIN LA [Suspect]
     Indication: ATTENTION DEFICIT/HYPERACTIVITY DISORDER
     Dosage: 1 DF, DAILY

REACTIONS (3)
  - Confusional state [Recovered/Resolved]
  - Hallucination, visual [Unknown]
  - Insomnia [Not Recovered/Not Resolved]
